FAERS Safety Report 12820393 (Version 2)
Quarter: 2016Q4

REPORT INFORMATION
  Report Type: Report from Study
  Country: BR (occurrence: BR)
  Receive Date: 20161006
  Receipt Date: 20161019
  Transmission Date: 20170207
  Serious: Yes (Other)
  Sender: FDA-Public Use
  Company Number: PHHY2016BR136772

PATIENT
  Sex: Female
  Weight: 105 kg

DRUGS (4)
  1. ALENIA//ESOMEPRAZOLE MAGNESIUM [Concomitant]
     Active Substance: ESOMEPRAZOLE MAGNESIUM
     Indication: PRODUCT USED FOR UNKNOWN INDICATION
     Route: 065
  2. FORASEQ [Suspect]
     Active Substance: BUDESONIDE\FORMOTEROL FUMARATE
     Indication: EMPHYSEMA
     Dosage: 1 DF, QD (BUDESONIDE 400 MCG AND FORMOTEROL FUMARATE 12 MCG)
     Route: 055
     Dates: start: 2015
  3. FORASEQ [Suspect]
     Active Substance: BUDESONIDE\FORMOTEROL FUMARATE
     Indication: CYSTIC FIBROSIS
  4. PREDSIN [Concomitant]
     Indication: PRODUCT USED FOR UNKNOWN INDICATION
     Dosage: (USED FOR 30 DAYS)
     Route: 065

REACTIONS (11)
  - Dyspnoea [Not Recovered/Not Resolved]
  - Pneumonia [Recovered/Resolved]
  - Progressive massive fibrosis [Unknown]
  - Memory impairment [Unknown]
  - Expired product administered [Unknown]
  - Cough [Not Recovered/Not Resolved]
  - Drug dispensing error [Unknown]
  - Deafness [Unknown]
  - Weight increased [Not Recovered/Not Resolved]
  - Body height decreased [Unknown]
  - Malaise [Unknown]

NARRATIVE: CASE EVENT DATE: 2015
